FAERS Safety Report 5324111-1 (Version None)
Quarter: 2007Q2

REPORT INFORMATION
  Report Type: 
  Country: None (occurrence: None)
  Receive Date: 20070514
  Receipt Date: 20060530
  Transmission Date: 20071010
  Serious: No
  Sender: FDA-Public Use
  Company Number: A0607274A

PATIENT
  Age: 65 Year
  Sex: Female

DRUGS (6)
  1. NABUMETONE [Suspect]
     Indication: OSTEOARTHRITIS
     Dosage: 500MG VARIABLE DOSE
     Route: 048
     Dates: start: 19970101
  2. PREMARIN [Concomitant]
  3. UNIVASC [Concomitant]
  4. PLENDIL [Concomitant]
  5. UNKNOWN MEDICATION [Concomitant]
  6. ASPIRIN [Concomitant]

REACTIONS (4)
  - ARTHRALGIA [None]
  - JOINT DISLOCATION [None]
  - MUSCULOSKELETAL DISCOMFORT [None]
  - THERAPEUTIC RESPONSE DELAYED [None]
